FAERS Safety Report 10645275 (Version 1)
Quarter: 2014Q4

REPORT INFORMATION
  Report Type: Spontaneous
  Country: US (occurrence: None)
  Receive Date: 20141210
  Receipt Date: 20141210
  Transmission Date: 20150529
  Serious: Yes (Hospitalization)
  Sender: FDA-Public Use
  Company Number: None

PATIENT
  Age: 77 Year
  Sex: Male
  Weight: 95.26 kg

DRUGS (1)
  1. TESTIM [Suspect]
     Active Substance: TESTOSTERONE
     Indication: BLOOD TESTOSTERONE DECREASED
     Dosage: 1 TUBE 50 MG 1X DAY
     Dates: start: 20140903, end: 20141003

REACTIONS (3)
  - Rhinorrhoea [None]
  - Rhinalgia [None]
  - Headache [None]

NARRATIVE: CASE EVENT DATE: 20141003
